FAERS Safety Report 7426423-4 (Version None)
Quarter: 2011Q2

REPORT INFORMATION
  Report Type: 
  Country: None (occurrence: None)
  Receive Date: 20110420
  Receipt Date: 20110413
  Transmission Date: 20111010
  Serious: Yes (Hospitalization)
  Sender: FDA-Public Use
  Company Number: DE-AMGEN-DEUSP2011019745

PATIENT
  Sex: Female

DRUGS (2)
  1. TNF ALPHA BLOCKERS [Concomitant]
  2. PROLIA [Suspect]
     Indication: PRODUCT USED FOR UNKNOWN INDICATION

REACTIONS (2)
  - FURUNCLE [None]
  - DRUG INTERACTION [None]
